FAERS Safety Report 14838962 (Version 2)
Quarter: 2018Q2

REPORT INFORMATION
  Report Type: Spontaneous
  Country: BR (occurrence: BR)
  Receive Date: 20180502
  Receipt Date: 20180504
  Transmission Date: 20180711
  Serious: Yes (Other)
  Sender: FDA-Public Use
  Company Number: BR-PFIZER INC-2018176424

PATIENT
  Age: 87 Year
  Sex: Male

DRUGS (1)
  1. DETRUSITOL [Suspect]
     Active Substance: TOLTERODINE TARTRATE
     Dosage: 4 MG, 1X/DAY
     Dates: start: 2013

REACTIONS (5)
  - Cerebrovascular accident [Unknown]
  - Hepatomegaly [Unknown]
  - Cardiac disorder [Unknown]
  - Pollakiuria [Unknown]
  - Lung disorder [Unknown]

NARRATIVE: CASE EVENT DATE: 2015
